FAERS Safety Report 7391410-1 (Version None)
Quarter: 2011Q2

REPORT INFORMATION
  Report Type: 
  Country: None (occurrence: None)
  Receive Date: 20110404
  Receipt Date: 20110325
  Transmission Date: 20111010
  Serious: Yes (Hospitalization)
  Sender: FDA-Public Use
  Company Number: US-SANOFI-AVENTIS-2011SA018805

PATIENT
  Age: 64 Year
  Sex: Female

DRUGS (17)
  1. CRESTOR [Concomitant]
  2. DOXYCYCLINE [Concomitant]
  3. CELEBREX [Concomitant]
  4. PREDNISONE [Concomitant]
  5. TRAMADOL [Concomitant]
  6. AMBIEN [Concomitant]
  7. ALL OTHER THERAPEUTIC PRODUCTS [Concomitant]
     Dosage: 20 (UNITS UNKNOWN)
  8. LYRICA [Concomitant]
  9. XANAX [Concomitant]
  10. HUMIRA [Suspect]
     Dosage: EVERY 2 WEEKS
     Route: 058
  11. LEVOTHYROXINE SODIUM [Concomitant]
  12. PEPCID [Concomitant]
  13. ARAVA [Suspect]
     Indication: RHEUMATOID ARTHRITIS
     Route: 048
     Dates: start: 20081212
  14. LASIX [Concomitant]
  15. ACTONEL [Concomitant]
  16. CALCIUM/VITAMIN D [Concomitant]
  17. MULTI-VITAMINS [Concomitant]

REACTIONS (4)
  - POSTERIOR REVERSIBLE ENCEPHALOPATHY SYNDROME [None]
  - HEARING IMPAIRED [None]
  - VISUAL IMPAIRMENT [None]
  - GRAND MAL CONVULSION [None]
